FAERS Safety Report 6633703-9 (Version None)
Quarter: 2010Q1

REPORT INFORMATION
  Report Type: 
  Country: None (occurrence: None)
  Receive Date: 20100315
  Receipt Date: 20100310
  Transmission Date: 20100710
  Serious: Yes (Other)
  Sender: FDA-Public Use
  Company Number: US-ASTRAZENECA-2007UW09444

PATIENT
  Age: 380 Month
  Sex: Female
  Weight: 67.6 kg

DRUGS (34)
  1. SEROQUEL [Suspect]
     Indication: BIPOLAR DISORDER
     Dosage: 25 MG - 600 MG
     Route: 048
     Dates: start: 20030924
  2. SEROQUEL [Suspect]
     Dosage: 200MG, 600MG
     Route: 048
     Dates: start: 20040101
  3. SEROQUEL [Suspect]
     Route: 048
     Dates: start: 20070525
  4. ABILIFY [Concomitant]
     Route: 048
  5. PEPCID [Concomitant]
  6. VICODIN [Concomitant]
  7. MIRALAX [Concomitant]
  8. BENTYL [Concomitant]
  9. AMBIEN [Concomitant]
     Route: 048
     Dates: start: 20091009
  10. ATARAX [Concomitant]
     Route: 048
     Dates: start: 20091009
  11. METHADONE [Concomitant]
  12. VISICOL [Concomitant]
  13. SINGULAIR [Concomitant]
  14. MAXALT [Concomitant]
  15. NEXIUM [Concomitant]
     Dates: start: 20080717
  16. TOPAMAX [Concomitant]
  17. PHENERGAN HCL [Concomitant]
  18. ALBUTEROL [Concomitant]
  19. GEODON [Concomitant]
     Dosage: 80/5 MG, TWO TIMES A DAY
     Dates: start: 20080717
  20. GEODON [Concomitant]
     Dosage: TAKE 1 CAPSULE(S) BY MOUTH IN THE MORNING AND 2 CAPSULE(S) AT BEDTIME
     Route: 048
     Dates: start: 20091009
  21. LOPID [Concomitant]
     Indication: BLOOD TRIGLYCERIDES
     Dates: start: 20070525
  22. GLUCOPHAGE [Concomitant]
  23. SKELAXIN [Concomitant]
  24. SYNTHROID [Concomitant]
     Dates: start: 20080717
  25. LIPITOR [Concomitant]
     Dates: start: 20080717
  26. WELLBUTRIN [Concomitant]
  27. CYMBALTA [Concomitant]
     Dates: start: 20080717
  28. CIPRO [Concomitant]
  29. MACRODANTIN [Concomitant]
  30. FLEXERIL [Concomitant]
  31. XANAX [Concomitant]
  32. PHENAZOPYRIDINE [Concomitant]
  33. FEXOFENADINE [Concomitant]
  34. TRAZODONE HCL [Concomitant]
     Route: 048
     Dates: start: 20091009

REACTIONS (3)
  - NEUROPATHY PERIPHERAL [None]
  - TYPE 2 DIABETES MELLITUS [None]
  - WEIGHT INCREASED [None]
